FAERS Safety Report 6179326-X (Version None)
Quarter: 2009Q2

REPORT INFORMATION
  Report Type: 
  Country: None (occurrence: None)
  Receive Date: 20090505
  Receipt Date: 20090427
  Transmission Date: 20091009
  Serious: Yes (Death)
  Sender: FDA-Public Use
  Company Number: MY-JNJFOC-20090406544

PATIENT
  Sex: Female

DRUGS (1)
  1. REMICADE [Suspect]
     Indication: RHEUMATOID ARTHRITIS
     Dosage: COMMENCED TREATMENT WITH INFLXIMAB 3 WEEKS AGO (DATE UNSPECIFIED)
     Route: 042

REACTIONS (2)
  - SEPSIS [None]
  - VASCULITIS [None]
